FAERS Safety Report 8509581-X (Version None)
Quarter: 2012Q3

REPORT INFORMATION
  Report Type: 
  Country: None (occurrence: None)
  Receive Date: 20120713
  Receipt Date: 20120705
  Transmission Date: 20120928
  Serious: Yes (Life-Threatening)
  Sender: FDA-Public Use
  Company Number: CA-SANOFI-AVENTIS-2012SA048221

PATIENT
  Age: 43 Year
  Sex: Female

DRUGS (4)
  1. HYDROMORPHONE HCL [Concomitant]
  2. PAMIDRONATE DISODIUM [Concomitant]
  3. TAXOTERE [Suspect]
     Dosage: DOSAGE FORM: SOLUTION INTRAVENOUS
     Route: 042
  4. NORTRIPTYLINE HCL [Concomitant]

REACTIONS (5)
  - COUGH [None]
  - LUNG INFILTRATION [None]
  - RESPIRATORY FAILURE [None]
  - DYSPNOEA [None]
  - HYPOXIA [None]
